FAERS Safety Report 9375804 (Version 2)
Quarter: 2013Q3

REPORT INFORMATION
  Report Type: Spontaneous
  Country: US (occurrence: US)
  Receive Date: 20130628
  Receipt Date: 20130716
  Transmission Date: 20140515
  Serious: No
  Sender: FDA-Public Use
  Company Number: US-PFIZER INC-2013190106

PATIENT
  Age: 35 Year
  Sex: Male
  Weight: 68.03 kg

DRUGS (1)
  1. EPIPEN [Suspect]
     Indication: HYPERSENSITIVITY
     Dosage: 0.3 MG, AS NEEDED
     Route: 030
     Dates: start: 20130624

REACTIONS (5)
  - Accidental exposure to product [Not Recovered/Not Resolved]
  - Tremor [Recovered/Resolved]
  - Nausea [Recovered/Resolved]
  - Asthenia [Recovered/Resolved]
  - Migraine [Not Recovered/Not Resolved]
